FAERS Safety Report 7978648-7 (Version None)
Quarter: 2011Q4

REPORT INFORMATION
  Report Type: 
  Country: None (occurrence: None)
  Receive Date: 20111207
  Receipt Date: 20111124
  Transmission Date: 20120403
  Serious: Yes (Other)
  Sender: FDA-Public Use
  Company Number: DSA_45187_2011

PATIENT
  Age: 61 Year
  Sex: Female

DRUGS (16)
  1. ASPIRIN [Concomitant]
  2. BENDROFLUMETHIAZIDE [Concomitant]
  3. MEBEVERINE [Concomitant]
  4. BISOPROLOL FUMARATE [Suspect]
     Indication: PRODUCT USED FOR UNKNOWN INDICATION
     Dosage: (DF)
     Dates: start: 20101001, end: 20101006
  5. LOSARTAN POTASSIUM [Concomitant]
  6. RAMIPRIL [Suspect]
     Indication: BLOOD PRESSURE
     Dosage: (0.75 MG DAILY), (1/2 TABLET DAILY), (INCREASED TO 2.5 MG;UNKNOWN)
     Dates: start: 20101118, end: 20101101
  7. RAMIPRIL [Suspect]
     Indication: BLOOD PRESSURE
     Dosage: (0.75 MG DAILY), (1/2 TABLET DAILY), (INCREASED TO 2.5 MG;UNKNOWN)
     Dates: start: 20101206, end: 20101216
  8. RAMIPRIL [Suspect]
     Indication: BLOOD PRESSURE
     Dosage: (0.75 MG DAILY), (1/2 TABLET DAILY), (INCREASED TO 2.5 MG;UNKNOWN)
     Dates: start: 20101101, end: 20101205
  9. ALL OTHER THERAPEUTIC PRODUCTS (ALL OTHER THERAPEUTIC PRODUCTS) [Concomitant]
  10. SIMVASTATIN [Concomitant]
  11. INDAPAMIDE [Concomitant]
  12. DILTIAZEM HYDROCHLORIDE [Suspect]
     Indication: PRODUCT USED FOR UNKNOWN INDICATION
     Dosage: (200 MG QD ORAL), (DF)
     Route: 048
     Dates: start: 20101006, end: 20101104
  13. CAPARRAL DANDELION BLEND [Concomitant]
  14. SOTALOL HCL [Concomitant]
  15. BETA BLOCKING AGENTS [Concomitant]
  16. TONIC FROM A MEDICAL HERBALIST [Concomitant]

REACTIONS (12)
  - NAUSEA [None]
  - DRUG HYPERSENSITIVITY [None]
  - DIZZINESS [None]
  - HYPOAESTHESIA [None]
  - VERTIGO [None]
  - VISUAL IMPAIRMENT [None]
  - BLOOD PRESSURE INCREASED [None]
  - LACRIMATION DECREASED [None]
  - MIGRAINE [None]
  - VISION BLURRED [None]
  - CONDITION AGGRAVATED [None]
  - DRUG INTOLERANCE [None]
